FAERS Safety Report 9038728 (Version 1)
Quarter: 2013Q1

REPORT INFORMATION
  Report Type: Spontaneous
  Country: US (occurrence: None)
  Receive Date: 20130123
  Receipt Date: 20130123
  Transmission Date: 20140127
  Serious: Yes (Life-Threatening, Hospitalization)
  Sender: FDA-Public Use
  Company Number: None

PATIENT
  Age: 63 Year
  Sex: Female
  Weight: 52.7 kg

DRUGS (1)
  1. DEVICE [Suspect]
     Indication: ATRIAL FIBRILLATION
     Dosage: 1 DEVICE USED ONCE EPICARDIAL
     Dates: start: 20130110

REACTIONS (3)
  - Pericardial effusion [None]
  - Cardiac tamponade [None]
  - Device failure [None]
